FAERS Safety Report 9543258 (Version 1)
Quarter: 2013Q2

REPORT INFORMATION
  Report Type: Spontaneous
  Country: US (occurrence: None)
  Receive Date: 20130524
  Receipt Date: 20130524
  Transmission Date: 20140414
  Serious: Yes (Other)
  Sender: FDA-Public Use
  Company Number: PHEH2012US025011

PATIENT
  Age: 52 Year
  Sex: Female
  Weight: 70.3 kg

DRUGS (1)
  1. GILENYA (FINGOLIMOD) CAPSULE, 0.5MG [Suspect]
     Indication: MULTIPLE SCLEROSIS
     Dosage: 0.5 MG, UNK, ORAL
     Route: 048
     Dates: start: 20121218

REACTIONS (3)
  - Feeling hot [None]
  - Fatigue [None]
  - Dyspepsia [None]
